FAERS Safety Report 15823851 (Version 4)
Quarter: 2019Q2

REPORT INFORMATION
  Report Type: Report from Study
  Country: AT (occurrence: AT)
  Receive Date: 20190114
  Receipt Date: 20190423
  Transmission Date: 20190711
  Serious: Yes (Hospitalization, Other)
  Sender: FDA-Public Use
  Company Number: AT-SEATTLE GENETICS-2019SGN00059

PATIENT
  Sex: Male

DRUGS (3)
  1. BRENTUXIMAB VEDOTIN [Suspect]
     Active Substance: BRENTUXIMAB VEDOTIN
     Indication: HODGKIN^S DISEASE
     Dosage: UNK
     Route: 065
     Dates: start: 20180926
  2. BRENTUXIMAB VEDOTIN [Suspect]
     Active Substance: BRENTUXIMAB VEDOTIN
     Indication: MARGINAL ZONE LYMPHOMA
     Dosage: 160 MILLIGRAM
     Route: 065
     Dates: start: 20190117
  3. BRENTUXIMAB VEDOTIN [Suspect]
     Active Substance: BRENTUXIMAB VEDOTIN
     Dosage: 106 MILLIGRAM
     Route: 065
     Dates: start: 20190207, end: 20190207

REACTIONS (4)
  - Hodgkin^s disease [Unknown]
  - Faecaloma [Recovered/Resolved]
  - Pyrexia [Recovered/Resolved]
  - Polyneuropathy [Not Recovered/Not Resolved]

NARRATIVE: CASE EVENT DATE: 20181229
